FAERS Safety Report 19071794 (Version 6)
Quarter: 2021Q4

REPORT INFORMATION
  Report Type: Report from Study
  Country: US (occurrence: US)
  Receive Date: 20210330
  Receipt Date: 20211011
  Transmission Date: 20220303
  Serious: No
  Sender: FDA-Public Use
  Company Number: NVSC2021US072272

PATIENT
  Sex: Male

DRUGS (2)
  1. ENTRESTO [Suspect]
     Active Substance: SACUBITRIL\VALSARTAN
     Indication: Product used for unknown indication
     Dosage: 1 DF, BID (50MG, 24/26MG)
     Route: 048
  2. LASIX [Concomitant]
     Active Substance: FUROSEMIDE
     Indication: Product used for unknown indication
     Dosage: UNK, UNKNOWN
     Route: 065

REACTIONS (7)
  - Dyspnoea [Unknown]
  - Nocturnal dyspnoea [Unknown]
  - Memory impairment [Unknown]
  - Musculoskeletal stiffness [Unknown]
  - Hypoacusis [Unknown]
  - Weight decreased [Unknown]
  - Inappropriate schedule of product administration [Unknown]
